FAERS Safety Report 5124773-8 (Version None)
Quarter: 2006Q4

REPORT INFORMATION
  Report Type: 
  Country: None (occurrence: None)
  Receive Date: 20061011
  Receipt Date: 20060915
  Transmission Date: 20070319
  Serious: Yes (Hospitalization)
  Sender: FDA-Public Use
  Company Number: PHHO2006AU15730

PATIENT
  Age: 49 Year
  Sex: Female

DRUGS (2)
  1. NEORAL [Suspect]
     Indication: RENAL TRANSPLANT
  2. CERTICAN [Suspect]
     Indication: RENAL TRANSPLANT
     Dosage: 3.0 MG / DAY
     Route: 048
     Dates: start: 20060908, end: 20060914

REACTIONS (9)
  - ABDOMINAL PAIN [None]
  - ANURIA [None]
  - ARTERIAL THROMBOSIS [None]
  - BLOOD CREATININE INCREASED [None]
  - NEPHROPATHY TOXIC [None]
  - POST PROCEDURAL URINE LEAK [None]
  - URETERAL NECROSIS [None]
  - URETERONEOCYSTOSTOMY [None]
  - URINARY RETENTION [None]
